FAERS Safety Report 16735868 (Version 10)
Quarter: 2023Q2

REPORT INFORMATION
  Report Type: Spontaneous
  Country: US (occurrence: US)
  Receive Date: 20190823
  Receipt Date: 20230502
  Transmission Date: 20230722
  Serious: Yes (Hospitalization, Other)
  Sender: FDA-Public Use
  Company Number: US-PFIZER INC-2019360210

PATIENT
  Age: 82 Year
  Sex: Female

DRUGS (1)
  1. XELJANZ XR [Suspect]
     Active Substance: TOFACITINIB CITRATE
     Dosage: 11 MG, DAILY

REACTIONS (14)
  - Internal haemorrhage [Unknown]
  - Gastritis [Unknown]
  - Malaise [Unknown]
  - Anaemia [Unknown]
  - Arrhythmia [Unknown]
  - Hypoacusis [Unknown]
  - Pain [Unknown]
  - Fatigue [Unknown]
  - Headache [Unknown]
  - Nasopharyngitis [Unknown]
  - Oropharyngeal pain [Unknown]
  - Peripheral coldness [Unknown]
  - Bradykinesia [Unknown]
  - Confusional state [Unknown]
